FAERS Safety Report 20300252 (Version 1)
Quarter: 2022Q1

REPORT INFORMATION
  Report Type: Spontaneous
  Country: US (occurrence: US)
  Receive Date: 20220105
  Receipt Date: 20220105
  Transmission Date: 20220424
  Serious: Yes (Hospitalization, Other)
  Sender: FDA-Public Use
  Company Number: US-ARBOR PHARMACEUTICALS, LLC-US-2021ARB001702

PATIENT
  Age: 61 Year
  Sex: Female
  Weight: 68.027 kg

DRUGS (5)
  1. IVERMECTIN [Suspect]
     Active Substance: IVERMECTIN
     Indication: COVID-19 prophylaxis
     Dosage: 1/4 TEASPOON (FIRST DOSE)
     Dates: start: 20210627, end: 20210627
  2. IVERMECTIN [Suspect]
     Active Substance: IVERMECTIN
     Dosage: 1/4 TEASPOON (SECOND DOSE)
     Dates: start: 2021, end: 2021
  3. IVERMECTIN [Suspect]
     Active Substance: IVERMECTIN
     Dosage: 1/4 TEASPOON (THIRD DOSE)
     Dates: start: 202107, end: 202107
  4. METOPROLOL SUCCINATE [Concomitant]
     Active Substance: METOPROLOL SUCCINATE
     Indication: Product used for unknown indication
     Dosage: 25 MG, QD
  5. CYCLOBENZAPRINE [Concomitant]
     Active Substance: CYCLOBENZAPRINE
     Indication: Product used for unknown indication
     Dosage: 10 MG, PRN

REACTIONS (1)
  - Hepatocellular injury [Recovered/Resolved]

NARRATIVE: CASE EVENT DATE: 20210714
